FAERS Safety Report 8993377 (Version 2)
Quarter: 2013Q1

REPORT INFORMATION
  Report Type: Report from Study
  Country: US (occurrence: US)
  Receive Date: 20130102
  Receipt Date: 20130213
  Transmission Date: 20140127
  Serious: Yes (Hospitalization)
  Sender: FDA-Public Use
  Company Number: US-AMGEN-USACT2012083908

PATIENT
  Age: 37 Year
  Sex: Male

DRUGS (2)
  1. PEGFILGRASTIM [Suspect]
     Indication: NEUTROPENIA
     Dosage: 6 MUG, ONE TIME DOSE
     Route: 058
     Dates: start: 20121206, end: 20121207
  2. GINGER [Concomitant]
     Dosage: UNK
     Dates: start: 20121219

REACTIONS (3)
  - Arthralgia [Unknown]
  - Joint swelling [Unknown]
  - Pharyngeal oedema [Unknown]
